FAERS Safety Report 15894957 (Version 2)
Quarter: 2022Q2

REPORT INFORMATION
  Report Type: Spontaneous
  Country: CA (occurrence: CA)
  Receive Date: 20190131
  Receipt Date: 20220420
  Transmission Date: 20220721
  Serious: Yes (Hospitalization, Other)
  Sender: FDA-Public Use
  Company Number: CA-TEVA-2019-CA-1004341

PATIENT
  Age: 11 Year
  Sex: Female

DRUGS (12)
  1. SULFAMETHOXAZOLE\TRIMETHOPRIM [Suspect]
     Active Substance: SULFAMETHOXAZOLE\TRIMETHOPRIM
     Indication: Postoperative wound infection
     Route: 048
  2. CYCLOSPORINE [Suspect]
     Active Substance: CYCLOSPORINE
     Indication: Stevens-Johnson syndrome
     Dosage: 5 MG/KG DAILY;
     Route: 065
  3. CYCLOSPORINE [Suspect]
     Active Substance: CYCLOSPORINE
     Indication: Overlap syndrome
  4. CYCLOSPORINE [Suspect]
     Active Substance: CYCLOSPORINE
     Indication: Toxic epidermal necrolysis
  5. CIPROFLOXACIN [Concomitant]
     Active Substance: CIPROFLOXACIN
     Indication: Postoperative wound infection
     Route: 048
  6. MEROPENEM [Concomitant]
     Active Substance: MEROPENEM
     Indication: Postoperative wound infection
     Route: 042
  7. METHYLPREDNISOLONE [Concomitant]
     Active Substance: METHYLPREDNISOLONE
     Indication: Stevens-Johnson syndrome
     Dosage: 30 MG/KG DAILY;
     Route: 042
  8. METHYLPREDNISOLONE [Concomitant]
     Active Substance: METHYLPREDNISOLONE
     Indication: Overlap syndrome
  9. METHYLPREDNISOLONE [Concomitant]
     Active Substance: METHYLPREDNISOLONE
     Indication: Toxic epidermal necrolysis
  10. ETANERCEPT [Concomitant]
     Active Substance: ETANERCEPT
     Indication: Stevens-Johnson syndrome
     Dosage: 1 DOSAGE FORMS DAILY; RECEIVED A TOTAL OF 2 DOSES
     Route: 058
  11. ETANERCEPT [Concomitant]
     Active Substance: ETANERCEPT
     Indication: Overlap syndrome
  12. ETANERCEPT [Concomitant]
     Active Substance: ETANERCEPT
     Indication: Toxic epidermal necrolysis

REACTIONS (6)
  - Stevens-Johnson syndrome [Unknown]
  - Toxic epidermal necrolysis [Unknown]
  - Overlap syndrome [Unknown]
  - Posterior reversible encephalopathy syndrome [Unknown]
  - Hypertension [Unknown]
  - Seizure [Unknown]
